FAERS Safety Report 4959755-X (Version None)
Quarter: 2006Q1

REPORT INFORMATION
  Report Type: 
  Country: None (occurrence: None)
  Receive Date: 20060331
  Receipt Date: 20060328
  Transmission Date: 20060701
  Serious: Yes (Other)
  Sender: FDA-Public Use
  Company Number: 2006SE01804

PATIENT
  Age: 77 Year
  Sex: Female

DRUGS (2)
  1. AMIAS 2MG TABLETS [Suspect]
     Indication: HYPERTENSION
     Route: 048
  2. AMIAS 2MG TABLETS [Suspect]
     Route: 048

REACTIONS (2)
  - CONDITION AGGRAVATED [None]
  - PSORIASIS [None]
